FAERS Safety Report 4714590-2 (Version None)
Quarter: 2005Q3

REPORT INFORMATION
  Report Type: 
  Country: None (occurrence: None)
  Receive Date: 20050713
  Receipt Date: 20050713
  Transmission Date: 20060218
  Serious: Yes (Hospitalization)
  Sender: FDA-Public Use
  Company Number: None

PATIENT
  Age: 70 Year
  Sex: Female

DRUGS (10)
  1. GATIFLOXACIN [Suspect]
     Indication: BRONCHITIS
     Dosage: ORAL; 400.0 MILLIGRAM
     Route: 048
     Dates: start: 20050601, end: 20050606
  2. GLIPIZIDE [Concomitant]
  3. SIMVASTATIN [Concomitant]
  4. VALSARTAN [Concomitant]
  5. FEXOFENADINE HCL [Concomitant]
  6. ADVAIR DISKUS 100/50 [Concomitant]
  7. ATROVENT [Concomitant]
  8. VERAPAMIL [Concomitant]
  9. M.V.I. [Concomitant]
  10. CA [Concomitant]

REACTIONS (4)
  - CHEST DISCOMFORT [None]
  - DIABETES MELLITUS INADEQUATE CONTROL [None]
  - HYPERHIDROSIS [None]
  - HYPOGLYCAEMIA [None]
